FAERS Safety Report 22196128 (Version 4)
Quarter: 2024Q2

REPORT INFORMATION
  Report Type: Spontaneous
  Country: US (occurrence: US)
  Receive Date: 20230411
  Receipt Date: 20240509
  Transmission Date: 20240716
  Serious: Yes (Other)
  Sender: FDA-Public Use
  Company Number: US-TAKEDA-2023TUS036225

PATIENT
  Age: 73 Year
  Sex: Female
  Weight: 70 kg

DRUGS (16)
  1. GAMMAGARD LIQUID [Suspect]
     Active Substance: HUMAN IMMUNOGLOBULIN G
     Indication: Multifocal motor neuropathy
     Dosage: 80 GRAM
     Route: 050
     Dates: start: 20230214
  2. GAMMAGARD LIQUID [Suspect]
     Active Substance: HUMAN IMMUNOGLOBULIN G
     Dosage: UNK UNK, Q3WEEKS
     Route: 042
     Dates: start: 20230215
  3. GAMMAGARD LIQUID [Suspect]
     Active Substance: HUMAN IMMUNOGLOBULIN G
     Dosage: 1 GRAM, Q4WEEKS
     Route: 065
  4. GAMMAGARD LIQUID [Suspect]
     Active Substance: HUMAN IMMUNOGLOBULIN G
     Dosage: 1 GRAM, Q3WEEKS
     Route: 065
  5. GAMMAGARD LIQUID [Suspect]
     Active Substance: HUMAN IMMUNOGLOBULIN G
     Dosage: 70 GRAM
     Route: 065
     Dates: start: 202304
  6. GAMMAGARD LIQUID [Suspect]
     Active Substance: HUMAN IMMUNOGLOBULIN G
     Dosage: 80 GRAM, Q3WEEKS
     Route: 042
     Dates: start: 202304
  7. ADVATE [Suspect]
     Active Substance: ANTIHEMOPHILIC FACTOR, HUMAN RECOMBINANT
     Indication: Product used for unknown indication
     Dosage: UNK
     Route: 065
  8. ADVATE [Suspect]
     Active Substance: ANTIHEMOPHILIC FACTOR, HUMAN RECOMBINANT
     Indication: Product used for unknown indication
     Dosage: UNK
     Route: 065
  9. ADVATE [Suspect]
     Active Substance: ANTIHEMOPHILIC FACTOR, HUMAN RECOMBINANT
     Indication: Product used for unknown indication
     Dosage: UNK
     Route: 065
  10. PANTOPRAZOLE [Concomitant]
     Active Substance: PANTOPRAZOLE
     Indication: Gastrooesophageal reflux disease
     Dosage: 40 MILLIGRAM, QD
     Route: 065
  11. ASPIRIN [Concomitant]
     Active Substance: ASPIRIN
     Dosage: UNK
     Route: 065
  12. BENADRYL [Concomitant]
     Active Substance: DIPHENHYDRAMINE HYDROCHLORIDE
     Indication: Multiple allergies
     Dosage: UNK
     Route: 065
  13. SYNTHROID [Concomitant]
     Active Substance: LEVOTHYROXINE SODIUM
     Indication: Thyroiditis
     Dosage: 0.88 MICROGRAM
     Route: 065
  14. ATIVAN [Concomitant]
     Active Substance: LORAZEPAM
     Indication: Anxiety
     Dosage: UNK
     Route: 065
  15. CELEBREX [Concomitant]
     Active Substance: CELECOXIB
     Dosage: UNK
     Route: 065
  16. TESTOSTERONE [Concomitant]
     Active Substance: TESTOSTERONE
     Dosage: UNK
     Route: 065

REACTIONS (8)
  - Therapeutic response shortened [Unknown]
  - Multiple allergies [Unknown]
  - Fistula [Unknown]
  - Infusion related reaction [Unknown]
  - Asthenia [Unknown]
  - Muscular weakness [Unknown]
  - Pruritus [Unknown]
  - Headache [Unknown]

NARRATIVE: CASE EVENT DATE: 20230401
